FAERS Safety Report 6842646-7 (Version None)
Quarter: 2010Q3

REPORT INFORMATION
  Report Type: 
  Country: None (occurrence: None)
  Receive Date: 20100714
  Receipt Date: 20070802
  Transmission Date: 20110219
  Serious: No
  Sender: FDA-Public Use
  Company Number: US-PFIZER INC-2007065676

PATIENT
  Sex: Female
  Weight: 56.7 kg

DRUGS (3)
  1. CHANTIX [Suspect]
     Indication: SMOKING CESSATION THERAPY
     Dates: start: 20070601, end: 20070612
  2. PROTONIX [Concomitant]
  3. LAMICTAL [Concomitant]
     Indication: AFFECTIVE DISORDER

REACTIONS (2)
  - GASTRIC DISORDER [None]
  - GASTRIC ULCER [None]
